FAERS Safety Report 12959375 (Version 1)
Quarter: 2016Q4

REPORT INFORMATION
  Report Type: Report from Study
  Country: ES (occurrence: ES)
  Receive Date: 20161121
  Receipt Date: 20161121
  Transmission Date: 20170207
  Serious: Yes (Disabling, Other)
  Sender: FDA-Public Use
  Company Number: PHHY2016ES157480

PATIENT
  Sex: Female
  Weight: 72 kg

DRUGS (2)
  1. TRAMETINIB [Suspect]
     Active Substance: TRAMETINIB
     Indication: METASTATIC MALIGNANT MELANOMA
     Dosage: 0.025 MG/KG, QD
     Route: 048
     Dates: start: 20160715, end: 20161023
  2. DABRAFENIB [Suspect]
     Active Substance: DABRAFENIB
     Indication: METASTATIC MALIGNANT MELANOMA
     Route: 048

REACTIONS (8)
  - Upper respiratory tract infection [Recovering/Resolving]
  - Pyrexia [Recovering/Resolving]
  - Skin lesion [Unknown]
  - Gastrointestinal haemorrhage [Recovering/Resolving]
  - Purpura [Recovering/Resolving]
  - Spinal cord neoplasm [Recovering/Resolving]
  - Rash [Unknown]
  - Hypersensitivity vasculitis [Recovering/Resolving]
